FAERS Safety Report 13805279 (Version 1)
Quarter: 2017Q3

REPORT INFORMATION
  Report Type: Spontaneous
  Country: US (occurrence: US)
  Receive Date: 20170728
  Receipt Date: 20170728
  Transmission Date: 20171127
  Serious: Yes (Death)
  Sender: FDA-Public Use
  Company Number: None

PATIENT
  Age: 88 Year
  Sex: Female
  Weight: 58 kg

DRUGS (2)
  1. RUXOLITINIB [Suspect]
     Active Substance: RUXOLITINIB
     Indication: DRUG THERAPY
     Route: 048
     Dates: start: 20160205, end: 20161209
  2. RUXOLITINIB [Suspect]
     Active Substance: RUXOLITINIB
     Indication: DRUG THERAPY
     Route: 048
     Dates: start: 20170203

REACTIONS (1)
  - Cardiac disorder [None]

NARRATIVE: CASE EVENT DATE: 20170720
